FAERS Safety Report 4386079-4 (Version None)
Quarter: 2004Q2

REPORT INFORMATION
  Report Type: 
  Country: None (occurrence: None)
  Receive Date: 20040610
  Receipt Date: 20040505
  Transmission Date: 20050107
  Serious: Yes (Hospitalization)
  Sender: FDA-Public Use
  Company Number: US-JNJFOC-20040305043

PATIENT
  Age: 67 Year
  Sex: Female
  Weight: 62.1428 kg

DRUGS (18)
  1. NATRECOR [Suspect]
     Indication: CARDIAC FAILURE CONGESTIVE
     Dosage: 2 UG/KG;  0.01 UG/KG/MIN
     Dates: start: 20040319, end: 20040319
  2. NATRECOR [Suspect]
     Indication: CARDIAC FAILURE CONGESTIVE
     Dosage: 2 UG/KG;  0.01 UG/KG/MIN
     Dates: start: 20040319, end: 20040319
  3. LASIX [Suspect]
     Indication: DIURETIC THERAPY
     Dosage: INTRAVENOUS
     Route: 042
     Dates: start: 20040319
  4. ZAROXOLYN [Suspect]
     Indication: DIURETIC THERAPY
     Dosage: INTRAVENOUS
     Route: 042
     Dates: start: 20040319
  5. LASIX [Concomitant]
  6. GLUCATROL (GLIPIZIDE) [Concomitant]
  7. COREG [Concomitant]
  8. PRINIVIL [Concomitant]
  9. DIGOXIN [Concomitant]
  10. K-DUR 10 [Concomitant]
  11. SYNTHROID [Concomitant]
  12. PLAVIX [Concomitant]
  13. VITAMIN B12 [Concomitant]
  14. VITAMIN C (ASCORBIC ACID) [Concomitant]
  15. VITAMIN D [Concomitant]
  16. ZOLOFT [Concomitant]
  17. ZOCOR [Concomitant]
  18. ACETYLSALICYLIC ACID SRT [Concomitant]

REACTIONS (6)
  - HYPERGLYCAEMIA [None]
  - HYPERHIDROSIS [None]
  - HYPOTENSION [None]
  - NAUSEA [None]
  - VOMITING [None]
  - WHITE BLOOD CELL COUNT INCREASED [None]
